FAERS Safety Report 10332018 (Version 1)
Quarter: 2014Q3

REPORT INFORMATION
  Report Type: Spontaneous
  Country: US (occurrence: US)
  Receive Date: 20140722
  Receipt Date: 20140722
  Transmission Date: 20150326
  Serious: No
  Sender: FDA-Public Use
  Company Number: US-009507513-1406USA003071

PATIENT
  Age: 2 Year
  Sex: Male

DRUGS (2)
  1. MIRALAX [Suspect]
     Active Substance: POLYETHYLENE GLYCOL 3350
     Indication: FAECES HARD
  2. MIRALAX [Suspect]
     Active Substance: POLYETHYLENE GLYCOL 3350
     Indication: CONSTIPATION
     Dosage: 8.5 G, UNKNOWN
     Route: 048

REACTIONS (5)
  - Unevaluable event [Unknown]
  - Drug administered to patient of inappropriate age [Unknown]
  - Drug prescribing error [Unknown]
  - Off label use [Unknown]
  - Drug effect decreased [Unknown]
